FAERS Safety Report 16920651 (Version 1)
Quarter: 2019Q4

REPORT INFORMATION
  Report Type: Spontaneous
  Country: US (occurrence: US)
  Receive Date: 20191015
  Receipt Date: 20191015
  Transmission Date: 20200122
  Serious: Yes (Death, Other)
  Sender: FDA-Public Use
  Company Number: US-TEVA-2019-US-1121656

PATIENT
  Age: 78 Year
  Sex: Male

DRUGS (4)
  1. DOXORUBICIN [Suspect]
     Active Substance: DOXORUBICIN
     Indication: HODGKIN^S DISEASE
     Dosage: ABVD REGIMEN
     Route: 065
     Dates: start: 2001
  2. DACARBAZINE. [Suspect]
     Active Substance: DACARBAZINE
     Indication: HODGKIN^S DISEASE
     Dosage: ABVD REGIMEN
     Route: 065
     Dates: start: 2001
  3. BLEOMYCIN [Suspect]
     Active Substance: BLEOMYCIN SULFATE
     Indication: HODGKIN^S DISEASE
     Dosage: ABVD REGIMEN
     Route: 065
     Dates: start: 2001
  4. VINBLASTINE [Suspect]
     Active Substance: VINBLASTINE
     Indication: HODGKIN^S DISEASE
     Dosage: ABVD REGIMEN
     Route: 065
     Dates: start: 2001

REACTIONS (2)
  - Epstein-Barr virus associated lymphoma [Unknown]
  - Marginal zone lymphoma [Unknown]

NARRATIVE: CASE EVENT DATE: 2008
